FAERS Safety Report 16590880 (Version 1)
Quarter: 2019Q3

REPORT INFORMATION
  Report Type: Spontaneous
  Country: IN (occurrence: IN)
  Receive Date: 20190718
  Receipt Date: 20190718
  Transmission Date: 20191004
  Serious: Yes (Hospitalization, Other)
  Sender: FDA-Public Use
  Company Number: IN-SA-2019SA189990

PATIENT
  Age: 3 Year
  Sex: Female

DRUGS (5)
  1. ISONIAZID. [Suspect]
     Active Substance: ISONIAZID
     Indication: MENINGITIS TUBERCULOUS
     Dosage: QD IN MORNING EMPTY STOMACH
     Route: 048
  2. PHENYTOIN. [Concomitant]
     Active Substance: PHENYTOIN
     Indication: SEIZURE
     Dosage: 5 MG/KG, QD
     Route: 048
  3. PYRAZINAMIDE. [Suspect]
     Active Substance: PYRAZINAMIDE
     Indication: MENINGITIS TUBERCULOUS
     Dosage: QD IN MORNING EMPTY STOMACH
     Route: 048
  4. RIFAMPICIN [Suspect]
     Active Substance: RIFAMPIN
     Indication: MENINGITIS TUBERCULOUS
     Dosage: QD IN MORNING EMPTY STOMACH
     Route: 048
  5. ETHAMBUTOL [Suspect]
     Active Substance: ETHAMBUTOL HYDROCHLORIDE
     Indication: MENINGITIS TUBERCULOUS
     Dosage: QD IN MORNING EMPTY STOMACH

REACTIONS (13)
  - Depressed level of consciousness [Recovering/Resolving]
  - Loss of consciousness [Recovering/Resolving]
  - Vomiting [Recovering/Resolving]
  - Status epilepticus [Recovering/Resolving]
  - Hyperreflexia [Recovering/Resolving]
  - Granuloma [Recovering/Resolving]
  - Seizure [Recovering/Resolving]
  - Paradoxical drug reaction [Recovering/Resolving]
  - Tachycardia [Recovering/Resolving]
  - Extensor plantar response [Recovering/Resolving]
  - Eye movement disorder [Recovering/Resolving]
  - Tuberculoma of central nervous system [Recovering/Resolving]
  - Brain oedema [Recovering/Resolving]
